FAERS Safety Report 7456490-3 (Version None)
Quarter: 2011Q2

REPORT INFORMATION
  Report Type: 
  Country: None (occurrence: None)
  Receive Date: 20110503
  Receipt Date: 20110420
  Transmission Date: 20111010
  Serious: Yes (Hospitalization, Other)
  Sender: FDA-Public Use
  Company Number: US-ELI_LILLY_AND_COMPANY-US201103008563

PATIENT
  Sex: Female

DRUGS (3)
  1. FORTEO [Suspect]
     Indication: OSTEOPOROSIS
     Dosage: 20 UG, QD
     Route: 058
     Dates: start: 20110107, end: 20110126
  2. FORTEO [Suspect]
     Dosage: 20 UG, QD
     Dates: start: 20110304
  3. VITAMINS [Concomitant]

REACTIONS (6)
  - HIP FRACTURE [None]
  - MYALGIA [None]
  - ARTHRALGIA [None]
  - MUSCLE SPASMS [None]
  - FALL [None]
  - MOVEMENT DISORDER [None]
